FAERS Safety Report 6938319-2 (Version None)
Quarter: 2010Q3

REPORT INFORMATION
  Report Type: 
  Country: None (occurrence: None)
  Receive Date: 20100824
  Receipt Date: 20100812
  Transmission Date: 20110219
  Serious: Yes (Disabling, Other)
  Sender: FDA-Public Use
  Company Number: US-PFIZER INC-2010040513

PATIENT
  Sex: Male

DRUGS (7)
  1. CHANTIX [Suspect]
     Indication: SMOKING CESSATION THERAPY
     Dosage: STARTER PACK
     Route: 048
     Dates: start: 20080130, end: 20080221
  2. TRAMADOL [Concomitant]
     Indication: PAIN
     Dosage: UNK
     Dates: start: 20040101
  3. IBUPROFEN [Concomitant]
     Dosage: UNK
     Dates: start: 20030101, end: 20090101
  4. VICODIN [Concomitant]
     Indication: PAIN
     Dosage: UNK
     Dates: start: 20040101, end: 20090101
  5. VICODIN [Concomitant]
     Indication: HEADACHE
  6. VICODIN [Concomitant]
     Indication: JAW FRACTURE
  7. VICODIN [Concomitant]
     Indication: CONVULSION

REACTIONS (6)
  - BRAIN CONTUSION [None]
  - CONVULSION [None]
  - FALL [None]
  - JAW FRACTURE [None]
  - LOSS OF CONSCIOUSNESS [None]
  - ROAD TRAFFIC ACCIDENT [None]
